FAERS Safety Report 13930075 (Version 3)
Quarter: 2017Q4

REPORT INFORMATION
  Report Type: Report from Study
  Country: PH (occurrence: PH)
  Receive Date: 20170901
  Receipt Date: 20171110
  Transmission Date: 20180320
  Serious: Yes (Death, Hospitalization)
  Sender: FDA-Public Use
  Company Number: PHHY2017PH128295

PATIENT
  Age: 47 Year
  Sex: Male

DRUGS (2)
  1. GLIVEC [Suspect]
     Active Substance: IMATINIB MESYLATE
     Indication: PRODUCT USED FOR UNKNOWN INDICATION
     Dosage: 8 DF, QD
     Route: 048
  2. GLIVEC [Suspect]
     Active Substance: IMATINIB MESYLATE
     Dosage: 4 DF, QD
     Route: 048

REACTIONS (4)
  - Death [Fatal]
  - Haemoglobin decreased [Unknown]
  - Pain [Unknown]
  - Face oedema [Unknown]

NARRATIVE: CASE EVENT DATE: 20170528
